FAERS Safety Report 8826098 (Version 1)
Quarter: 2012Q4

REPORT INFORMATION
  Report Type: 
  Country: CO (occurrence: CO)
  Receive Date: 20121005
  Receipt Date: 20121005
  Transmission Date: 20130627
  Serious: Yes (Death)
  Sender: FDA-Public Use
  Company Number: CO-ROCHE-1137926

PATIENT
  Sex: Female

DRUGS (1)
  1. LUCENTIS [Suspect]
     Indication: ILL-DEFINED DISORDER
     Route: 050
     Dates: start: 20110517, end: 20111010

REACTIONS (1)
  - Cardiac operation [Fatal]
